FAERS Safety Report 15043711 (Version 2)
Quarter: 2018Q2

REPORT INFORMATION
  Report Type: Spontaneous
  Country: US (occurrence: US)
  Receive Date: 20180621
  Receipt Date: 20180622
  Transmission Date: 20180711
  Serious: No
  Sender: FDA-Public Use
  Company Number: US-TEVA-2018-US-903305

PATIENT
  Age: 25 Year
  Sex: Female
  Weight: 100 kg

DRUGS (2)
  1. ADIPEX-P [Suspect]
     Active Substance: PHENTERMINE HYDROCHLORIDE
     Indication: WEIGHT ABNORMAL
     Dates: start: 201606, end: 201702
  2. VITAMIN D [Concomitant]
     Active Substance: CHOLECALCIFEROL

REACTIONS (3)
  - Drug ineffective [Unknown]
  - Drug dose omission [Unknown]
  - Weight increased [Unknown]

NARRATIVE: CASE EVENT DATE: 201702
